FAERS Safety Report 10036126 (Version 2)
Quarter: 2014Q2

REPORT INFORMATION
  Report Type: Spontaneous
  Country: US (occurrence: US)
  Receive Date: 20140325
  Receipt Date: 20140408
  Transmission Date: 20141212
  Serious: Yes (Other)
  Sender: FDA-Public Use
  Company Number: US-PFIZER INC-2014083931

PATIENT
  Age: 6 Year
  Sex: Female

DRUGS (6)
  1. CISPLATIN [Suspect]
     Indication: OVARIAN CANCER
     Dosage: UNK
  2. DOXORUBICIN HCL [Suspect]
     Indication: OVARIAN CANCER
     Dosage: UNK
  3. CYCLOPHOSPHAMIDE [Suspect]
     Indication: OVARIAN CANCER
     Dosage: UNK
  4. ETOPOSIDE [Suspect]
     Indication: OVARIAN CANCER
     Dosage: UNK
  5. BLEOMYCIN [Suspect]
     Indication: OVARIAN CANCER
     Dosage: UNK
  6. VINBLASTINE [Suspect]
     Indication: OVARIAN CANCER
     Dosage: UNK

REACTIONS (3)
  - Bone marrow failure [Recovered/Resolved]
  - Febrile neutropenia [Recovered/Resolved]
  - Decreased appetite [Recovered/Resolved]
